FAERS Safety Report 6580992-5 (Version None)
Quarter: 2010Q1

REPORT INFORMATION
  Report Type: 
  Country: None (occurrence: None)
  Receive Date: 20100215
  Receipt Date: 20100204
  Transmission Date: 20100710
  Serious: Yes (Other)
  Sender: FDA-Public Use
  Company Number: US-AMGEN-KDL390678

PATIENT
  Sex: Male

DRUGS (4)
  1. ENBREL [Suspect]
     Indication: PSORIASIS
     Dates: start: 20080501, end: 20100120
  2. HYDROCHLOROTHIAZIDE [Concomitant]
  3. IBUPROFEN [Concomitant]
  4. UNSPECIFIED TOPICAL PRODUCT [Concomitant]
     Route: 061

REACTIONS (1)
  - IRITIS [None]
